FAERS Safety Report 7399048 (Version 2)
Quarter: 2013Q4

REPORT INFORMATION
  Report Type: Spontaneous
  Country: US (occurrence: None)
  Receive Date: 20100518
  Receipt Date: 20131216
  Transmission Date: 20140711
  Serious: Yes (Hospitalization, Other)
  Sender: FDA-Public Use
  Company Number: 2010S1002853

PATIENT
  Age: 60 Year
  Sex: Male
  Weight: 98.88 kg

DRUGS (7)
  1. PHOSPHO-SODA [Suspect]
     Indication: COLONOSCOPY
     Dosage: PO
     Route: 048
     Dates: start: 20080603, end: 20080603
  2. DULCOLAX (BISACODYL) [Suspect]
     Indication: COLONOSCOPY
     Route: 048
     Dates: start: 20080603, end: 20080603
  3. MAGNESIUM CITRATE [Suspect]
     Dosage: 1 BOTTLE
     Route: 048
     Dates: start: 20080603, end: 20080603
  4. LISINOPRIL HCTZ (HYDROCHLOROTHIAZIDE, LISINOPRIL) [Concomitant]
  5. LISINOPRIL (LISINOPRIL) [Concomitant]
  6. GLUCOSAMINE CHONROITIN (CHONDOITIN SULFATE, GLUCOSAMINE SULFATE) [Concomitant]
  7. ALEVE (NAPROXEN SODIUM) [Concomitant]

REACTIONS (7)
  - Renal failure acute [None]
  - Procedural hypotension [None]
  - Abdominal distension [None]
  - Syncope [None]
  - Hypovolaemia [None]
  - Hyperphosphataemia [None]
  - Renal failure chronic [None]
